FAERS Safety Report 5647453-9 (Version None)
Quarter: 2008Q1

REPORT INFORMATION
  Report Type: 
  Country: None (occurrence: None)
  Receive Date: 20080303
  Receipt Date: 20080220
  Transmission Date: 20080703
  Serious: Yes (Life-Threatening, Hospitalization)
  Sender: FDA-Public Use
  Company Number: FR-GENENTECH-256726

PATIENT
  Sex: Male

DRUGS (4)
  1. MABTHERA [Suspect]
     Indication: LYMPHOMA
     Dosage: UNK, SINGLE
     Route: 042
     Dates: start: 20071114
  2. ONCOVIN [Suspect]
     Indication: LYMPHOMA
     Dosage: UNK, SINGLE
     Route: 042
     Dates: start: 20071115
  3. DOXORUBICIN HCL [Suspect]
     Indication: LYMPHOMA
     Dosage: UNK, SINGLE
     Route: 042
     Dates: start: 20071115
  4. ENDOXAN [Suspect]
     Indication: LYMPHOMA
     Dosage: UNK, SINGLE
     Route: 042
     Dates: start: 20071115

REACTIONS (1)
  - BONE MARROW FAILURE [None]
